FAERS Safety Report 15589628 (Version 3)
Quarter: 2018Q4

REPORT INFORMATION
  Report Type: Spontaneous
  Country: US (occurrence: US)
  Receive Date: 20181106
  Receipt Date: 20181203
  Transmission Date: 20190205
  Serious: No
  Sender: FDA-Public Use
  Company Number: US-HORIZON-PRO-0221-2018

PATIENT
  Age: 17 Year
  Sex: Female

DRUGS (6)
  1. TRICITRATES [Concomitant]
     Active Substance: CITRIC ACID MONOHYDRATE\POTASSIUM CITRATE\SODIUM CITRATE
     Dosage: 7.5 ML Q6H
  2. CALCITRIOL. [Concomitant]
     Active Substance: CALCITRIOL
     Dosage: 0.25 ?G
  3. LEVOCARNITINE. [Concomitant]
     Active Substance: LEVOCARNITINE
     Dosage: 300 MG TID
  4. CHOLECALCIFEROL [Concomitant]
     Active Substance: CHOLECALCIFEROL
     Dosage: 4000 UNITS ONCE A DAY
  5. PROCYSBI [Suspect]
     Active Substance: CYSTEAMINE BITARTRATE
     Indication: CYSTINOSIS
     Dosage: 1050 MG BY MOUTH BID
     Dates: start: 201801
  6. K PHOS NEUTRAL [Concomitant]
     Active Substance: POTASSIUM PHOSPHATE, MONOBASIC\SODIUM PHOSPHATE, DIBASIC, ANHYDROUS\SODIUM PHOSPHATE, MONOBASIC, MONOHYDRATE
     Dosage: 3 PACKETS BID

REACTIONS (6)
  - Product size issue [Unknown]
  - Drug ineffective [Not Recovered/Not Resolved]
  - Abdominal discomfort [Not Recovered/Not Resolved]
  - Amino acid level increased [Unknown]
  - Underdose [Unknown]
  - Patient dissatisfaction with treatment [Unknown]

NARRATIVE: CASE EVENT DATE: 201801
